FAERS Safety Report 7214830-4 (Version None)
Quarter: 2011Q1

REPORT INFORMATION
  Report Type: 
  Country: None (occurrence: None)
  Receive Date: 20110107
  Receipt Date: 20100319
  Transmission Date: 20110831
  Serious: No
  Sender: FDA-Public Use
  Company Number: A0851146A

PATIENT
  Sex: Female

DRUGS (4)
  1. LOVAZA [Suspect]
     Dosage: 1G PER DAY
     Route: 048
     Dates: start: 20100310
  2. WELLBUTRIN XL [Concomitant]
  3. PRINIVIL [Concomitant]
  4. CYMBALTA [Concomitant]

REACTIONS (2)
  - CHOKING SENSATION [None]
  - DYSPHAGIA [None]
